FAERS Safety Report 10744377 (Version 1)
Quarter: 2015Q1

REPORT INFORMATION
  Report Type: Spontaneous
  Country: US (occurrence: None)
  Receive Date: 20150126
  Receipt Date: 20150126
  Transmission Date: 20150721
  Serious: Yes (Other)
  Sender: FDA-Public Use
  Company Number: 2015PAC00002

PATIENT
  Age: 61 Year
  Sex: Female
  Weight: 59 kg

DRUGS (1)
  1. CETIRIZINE HYDROCHLORIDE TABLETS 10MG - ALLERGY(CETIRIZINE) TABLET [Suspect]
     Active Substance: CETIRIZINE HYDROCHLORIDE
     Indication: RHINORRHOEA
     Route: 048
     Dates: start: 201406, end: 20150108

REACTIONS (6)
  - Fatigue [None]
  - Asthenia [None]
  - Aphasia [None]
  - Hypersomnia [None]
  - Hypokinesia [None]
  - Paraesthesia [None]

NARRATIVE: CASE EVENT DATE: 20150108
